FAERS Safety Report 10274390 (Version 1)
Quarter: 2014Q3

REPORT INFORMATION
  Report Type: Spontaneous
  Country: BR (occurrence: BR)
  Receive Date: 20140702
  Receipt Date: 20140702
  Transmission Date: 20150326
  Serious: Yes (Hospitalization)
  Sender: FDA-Public Use
  Company Number: PHHY2014BR080520

PATIENT
  Age: 72 Year
  Sex: Female

DRUGS (15)
  1. CLOMENAC [Concomitant]
     Dosage: 1 DF, BID (IN THE MORNING AND AFTER DINNER)
  2. ALL-26 GERIATRIC FDC [Concomitant]
     Dosage: 1 DF, DAILY
  3. RIVASTIGMINA [Concomitant]
     Dosage: 2 DF, DAILY (4.5 MG)
     Dates: start: 20120515
  4. RIVASTIGMINA [Concomitant]
     Dosage: 2 DF, DAILY (6.0 MG)
  5. EXELON [Suspect]
     Active Substance: RIVASTIGMINE TARTRATE
     Dosage: 2 DF, DAILY
     Route: 048
     Dates: start: 20110901
  6. PROCIMAX [Concomitant]
     Active Substance: CITALOPRAM HYDROBROMIDE
     Dosage: 0.5 DF, BID
     Dates: start: 20110503, end: 20110725
  7. ALOIS [Concomitant]
     Active Substance: MEMANTINE
     Dosage: 1 DF, BID
  8. OMEGA 3 [Concomitant]
     Active Substance: OMEGA-3 FATTY ACIDS
     Dosage: 1 DF, DAILY
  9. EXELON [Suspect]
     Active Substance: RIVASTIGMINE TARTRATE
     Dosage: 2 DF, DAILY (3.0MF)
     Route: 048
     Dates: start: 20110706
  10. PROCIMAX [Concomitant]
     Active Substance: CITALOPRAM HYDROBROMIDE
     Dosage: 1 DF, BID
     Dates: start: 20110726
  11. RIVOTRIL [Concomitant]
     Active Substance: CLONAZEPAM
     Dosage: 1 DF, BID (IN THE MORNING AND IN THE AFTERNOON)
  12. FLUOXETINE [Concomitant]
     Active Substance: FLUOXETINE\FLUOXETINE HYDROCHLORIDE
     Dosage: 20 MG, UNK
  13. TRILEPTAL [Suspect]
     Active Substance: OXCARBAZEPINE
     Indication: PARTIAL SEIZURES
     Dosage: 1 DF, QD (AT NIGHT)
     Dates: start: 20120303
  14. EXELON [Suspect]
     Active Substance: RIVASTIGMINE TARTRATE
     Dosage: 2 DF, DAILY (1.5 MG)
     Route: 048
     Dates: start: 20110512
  15. RIVOTRIL [Concomitant]
     Active Substance: CLONAZEPAM
     Indication: NERVOUSNESS
     Dosage: 0.5 DF, UNK (0.25 TO 0.5 DF)

REACTIONS (36)
  - Feeling abnormal [Unknown]
  - Ageusia [Unknown]
  - Malaise [Unknown]
  - Daydreaming [Unknown]
  - Abulia [Unknown]
  - Dizziness [Unknown]
  - Disturbance in attention [Unknown]
  - Tremor [Unknown]
  - Hallucination [Unknown]
  - Dyskinesia [Unknown]
  - Sleep disorder [Unknown]
  - Condition aggravated [Unknown]
  - Cognitive disorder [Unknown]
  - Mental disorder [Unknown]
  - Nervousness [Recovered/Resolved]
  - Impaired reasoning [Unknown]
  - Thinking abnormal [Unknown]
  - Infection [Unknown]
  - Agitation [Unknown]
  - Depression [Unknown]
  - Delusion [Unknown]
  - Balance disorder [Unknown]
  - Discomfort [Recovered/Resolved]
  - Tinnitus [Unknown]
  - Aggression [Unknown]
  - Anxiety [Unknown]
  - Asthenia [Unknown]
  - Somnolence [Unknown]
  - Urinary tract infection [Unknown]
  - Fatigue [Unknown]
  - Confusional state [Unknown]
  - Urinary incontinence [Recovered/Resolved]
  - Nervous system disorder [Unknown]
  - Memory impairment [Unknown]
  - Vertigo [Unknown]
  - Abdominal discomfort [Recovered/Resolved]

NARRATIVE: CASE EVENT DATE: 20130222
